FAERS Safety Report 5825689-1 (Version None)
Quarter: 2008Q3

REPORT INFORMATION
  Report Type: 
  Country: None (occurrence: None)
  Receive Date: 20080723
  Receipt Date: 20080716
  Transmission Date: 20090109
  Serious: Yes (Life-Threatening)
  Sender: FDA-Public Use
  Company Number: 2008AL007966

PATIENT
  Age: 45 Year
  Sex: Male
  Weight: 122.4712 kg

DRUGS (3)
  1. DIGOXIN [Suspect]
     Indication: CARDIAC DISORDER
     Dosage: 0.25MG DAILY PO
     Route: 048
     Dates: start: 20060101, end: 20080618
  2. VERAPAMIL [Concomitant]
  3. LOPRESSOR [Concomitant]

REACTIONS (22)
  - ABDOMINAL PAIN [None]
  - ANXIETY [None]
  - ASTHENIA [None]
  - CHOKING [None]
  - DEPRESSION [None]
  - DIARRHOEA [None]
  - DIZZINESS [None]
  - DYSPNOEA [None]
  - FATIGUE [None]
  - HAEMOPTYSIS [None]
  - HEADACHE [None]
  - HEART RATE DECREASED [None]
  - HEART RATE INCREASED [None]
  - HYPOAESTHESIA [None]
  - NAUSEA [None]
  - OEDEMA PERIPHERAL [None]
  - PARAESTHESIA [None]
  - POOR PERIPHERAL CIRCULATION [None]
  - RASH [None]
  - SYNCOPE [None]
  - THROAT TIGHTNESS [None]
  - TRANSIENT ISCHAEMIC ATTACK [None]
